FAERS Safety Report 4962737-5 (Version None)
Quarter: 2006Q1

REPORT INFORMATION
  Report Type: 
  Country: None (occurrence: None)
  Receive Date: 20060201
  Receipt Date: 20051201
  Transmission Date: 20060701
  Serious: No
  Sender: FDA-Public Use
  Company Number: 2005PV005302

PATIENT
  Sex: Female

DRUGS (1)
  1. BYETTA [Suspect]
     Dosage: 5 MCG;SC
     Route: 058
     Dates: start: 20051101

REACTIONS (2)
  - INCREASED UPPER AIRWAY SECRETION [None]
  - VOMITING [None]
